FAERS Safety Report 12295698 (Version 8)
Quarter: 2017Q1

REPORT INFORMATION
  Report Type: Report from Study
  Country: PA (occurrence: PA)
  Receive Date: 20160422
  Receipt Date: 20170302
  Transmission Date: 20170428
  Serious: Yes (Other)
  Sender: FDA-Public Use
  Company Number: PHHY2015PA118497

PATIENT
  Age: 35 Year
  Sex: Female

DRUGS (2)
  1. GILENYA [Suspect]
     Active Substance: FINGOLIMOD HYDROCHLORIDE
     Indication: PRODUCT USED FOR UNKNOWN INDICATION
     Dosage: 0.5 MG, UNK
     Route: 065
  2. GILENYA [Suspect]
     Active Substance: FINGOLIMOD HYDROCHLORIDE
     Dosage: 0.5 MG, UNK
     Route: 065

REACTIONS (30)
  - Pyrexia [Unknown]
  - Gait disturbance [Unknown]
  - Electroencephalogram abnormal [Unknown]
  - Urine odour abnormal [Unknown]
  - Nasopharyngitis [Unknown]
  - Myalgia [Unknown]
  - Neutrophil count increased [Unknown]
  - Productive cough [Unknown]
  - Underweight [Unknown]
  - White blood cell count decreased [Unknown]
  - Headache [Recovered/Resolved]
  - Paralysis [Unknown]
  - Hypokinesia [Unknown]
  - Visceral pain [Unknown]
  - Cough [Unknown]
  - Lymphocyte percentage decreased [Unknown]
  - Burning sensation [Unknown]
  - Back pain [Recovered/Resolved]
  - Erythema of eyelid [Unknown]
  - Electric shock [Unknown]
  - Agitation [Unknown]
  - Anaemia [Unknown]
  - Malnutrition [Unknown]
  - Aggression [Unknown]
  - Hyperhidrosis [Unknown]
  - Escherichia urinary tract infection [Unknown]
  - Central nervous system lesion [Unknown]
  - Anal incontinence [Recovered/Resolved]
  - Choking [Unknown]
  - Alopecia [Unknown]

NARRATIVE: CASE EVENT DATE: 20160830
